FAERS Safety Report 9171430 (Version 2)
Quarter: 2014Q1

REPORT INFORMATION
  Report Type: Report from Study
  Country: CA (occurrence: CA)
  Receive Date: 20130319
  Receipt Date: 20140127
  Transmission Date: 20141002
  Serious: Yes (Other)
  Sender: FDA-Public Use
  Company Number: CA-SHIRE-ALL1-2013-01504

PATIENT
  Age: 38 Year
  Sex: Male
  Weight: 69.7 kg

DRUGS (12)
  1. 602 (DEFERITAZOLE) [Suspect]
     Indication: IRON OVERLOAD
     Dosage: 75 MG/KG, 1X/DAY:QD
     Route: 048
     Dates: start: 20121214, end: 20130307
  2. L-THYROXIN [Concomitant]
     Indication: HYPOTHYROIDISM
     Dosage: 100 ?G, 1X/DAY:QD
     Route: 048
     Dates: start: 20071128
  3. DEPO-TESTOSTERONE [Concomitant]
     Indication: HYPOGONADISM
     Dosage: 400 MG, OTHER (EVERY MONTH)
     Route: 030
     Dates: start: 200907
  4. CIPRALEX                           /01588501/ [Concomitant]
     Indication: DEPRESSION
     Dosage: 30 MG, 1X/DAY:QD
     Route: 048
     Dates: start: 20120327
  5. AMIODARONE [Concomitant]
     Indication: ARRHYTHMIA
     Dosage: 100 MG, 1X/DAY:QD
     Route: 048
     Dates: start: 20020715, end: 20121229
  6. RAMIPRIL [Concomitant]
     Indication: ARRHYTHMIA
     Dosage: 25 MG, 1X/DAY:QD
     Route: 048
     Dates: start: 20041115, end: 20121229
  7. CODEINE [Concomitant]
     Indication: ARTHRALGIA
     Dosage: UNK, UNKNOWN
     Route: 048
     Dates: start: 20110330, end: 20121228
  8. TYLENOL COLD                       /00384601/ [Concomitant]
     Indication: UPPER RESPIRATORY TRACT INFECTION
     Dosage: 1 DF, 3X/DAY:TID
     Route: 048
     Dates: start: 20121228, end: 20130102
  9. BENADRYL                           /00000402/ [Concomitant]
     Indication: TRANSFUSION REACTION
     Dosage: 50 MG, OTHER
     Route: 042
     Dates: start: 20130111, end: 20130111
  10. BENADRYL                           /00000402/ [Concomitant]
     Dosage: 25 MG, OTHER
     Route: 042
     Dates: start: 20130208, end: 20130208
  11. FENTANYL [Concomitant]
     Indication: SEDATIVE THERAPY
     Dosage: 100 ?G, ONE DOSE
     Route: 042
     Dates: start: 20130328, end: 20130328
  12. DIAZEMULS [Concomitant]
     Indication: SEDATIVE THERAPY
     Dosage: 10 MG, ONE DOSE
     Route: 042
     Dates: start: 20130328, end: 20130328

REACTIONS (2)
  - Neuropathy peripheral [Recovered/Resolved with Sequelae]
  - Peripheral sensory neuropathy [None]
